FAERS Safety Report 12695682 (Version 1)
Quarter: 2016Q3

REPORT INFORMATION
  Report Type: Spontaneous
  Country: US (occurrence: US)
  Receive Date: 20160829
  Receipt Date: 20160829
  Transmission Date: 20161109
  Serious: Yes (Life-Threatening, Other)
  Sender: FDA-Public Use
  Company Number: US-CELGENEUS-USA-2016086844

PATIENT
  Age: 59 Year
  Sex: Male
  Weight: 82.63 kg

DRUGS (1)
  1. REVLIMID [Suspect]
     Active Substance: LENALIDOMIDE
     Indication: PLASMA CELL MYELOMA
     Dosage: 25 MILLIGRAM
     Route: 048
     Dates: start: 20160803

REACTIONS (1)
  - Pulmonary thrombosis [Recovered/Resolved with Sequelae]

NARRATIVE: CASE EVENT DATE: 201608
